FAERS Safety Report 6051585-3 (Version None)
Quarter: 2009Q1

REPORT INFORMATION
  Report Type: 
  Country: None (occurrence: None)
  Receive Date: 20090126
  Receipt Date: 20090123
  Transmission Date: 20090719
  Serious: Yes (Other)
  Sender: FDA-Public Use
  Company Number: D0060268A

PATIENT
  Age: 53 Year
  Sex: Female

DRUGS (1)
  1. CEFUHEXAL [Suspect]
     Indication: SINUSITIS
     Dosage: 500MG TWICE PER DAY
     Route: 048

REACTIONS (3)
  - ASTHMA [None]
  - DIARRHOEA [None]
  - DRUG INEFFECTIVE [None]
